FAERS Safety Report 19479852 (Version 1)
Quarter: 2021Q3

REPORT INFORMATION
  Report Type: Spontaneous
  Country: US (occurrence: US)
  Receive Date: 20210701
  Receipt Date: 20210701
  Transmission Date: 20211014
  Serious: No
  Sender: FDA-Public Use
  Company Number: US-JNJFOC-20210630557

PATIENT
  Sex: Female

DRUGS (1)
  1. MENS ROGAINE EXTRA STRENGTH [Suspect]
     Active Substance: MINOXIDIL
     Indication: ALOPECIA
     Dosage: DOSE: 3/4 OF A DROPPER (MEN^S ROGAINE IN THE BACK OF SCALP)?LAST USED DATE?14/JUN/2021
     Route: 061
     Dates: start: 2002

REACTIONS (3)
  - Product use issue [Unknown]
  - Application site pruritus [Unknown]
  - Intentional product misuse [Unknown]

NARRATIVE: CASE EVENT DATE: 2002
